FAERS Safety Report 8361678-3 (Version None)
Quarter: 2012Q2

REPORT INFORMATION
  Report Type: 
  Country: None (occurrence: None)
  Receive Date: 20120514
  Receipt Date: 20120501
  Transmission Date: 20120825
  Serious: Yes (Other)
  Sender: FDA-Public Use
  Company Number: 2012EK000009

PATIENT
  Age: 12 Year
  Weight: 36.2 kg

DRUGS (8)
  1. NIFEDIPINE [Concomitant]
     Indication: IMMUNOSUPPRESSION
     Dosage: PO
     Route: 048
  2. MOFETIL [Concomitant]
  3. PREDNISONE [Concomitant]
  4. BASILIXIMAB [Concomitant]
  5. METHYLPREDNISOLONE [Concomitant]
  6. MYCOPHENOLATE MOFETIL [Concomitant]
  7. CARDENE [Suspect]
     Indication: HYPERTENSION
     Dosage: IV
     Route: 042
  8. TACROLIMUS [Suspect]
     Indication: IMMUNOSUPPRESSION
     Dosage: 0.083 MG/KG 0.1 MG/KG;BID

REACTIONS (2)
  - TRANSPLANT REJECTION [None]
  - DRUG INTERACTION [None]
